FAERS Safety Report 9770545 (Version 1)
Quarter: 2013Q4

REPORT INFORMATION
  Report Type: Spontaneous
  Country: FR (occurrence: FR)
  Receive Date: 20131218
  Receipt Date: 20131218
  Transmission Date: 20140711
  Serious: Yes (Hospitalization)
  Sender: FDA-Public Use
  Company Number: FR-ASTRAZENECA-2013SE90733

PATIENT
  Age: 32770 Day
  Sex: Female

DRUGS (7)
  1. INEXIUM [Suspect]
     Route: 048
     Dates: start: 20130311, end: 20131004
  2. ISOPTINE [Suspect]
     Route: 048
     Dates: start: 20130311, end: 20131004
  3. STRESAM [Suspect]
     Route: 048
     Dates: start: 20130311, end: 20131004
  4. COVERSYL [Suspect]
     Route: 048
     Dates: start: 20130902, end: 20131004
  5. CYMBALTA [Suspect]
     Route: 048
     Dates: start: 20131002, end: 20131004
  6. IMOVANE [Suspect]
     Route: 048
     Dates: start: 20130830, end: 20131004
  7. SINEMET [Concomitant]
     Dates: start: 201303

REACTIONS (1)
  - Cholestasis [Recovering/Resolving]
